FAERS Safety Report 5597754-8 (Version None)
Quarter: 2007Q4

REPORT INFORMATION
  Report Type: 
  Country: None (occurrence: None)
  Receive Date: 20071221
  Receipt Date: 20070828
  Transmission Date: 20080405
  Serious: No
  Sender: FDA-Public Use
  Company Number: US-CVT-070154

PATIENT
  Age: 83 Year
  Sex: Male

DRUGS (4)
  1. RANEXA [Suspect]
     Indication: ANGINA PECTORIS
     Dosage: 500 MG, QD, ORAL ; 500 MG, BID, ORAL ; 1000 MG, BID, ORAL
     Route: 048
     Dates: start: 20070606, end: 20070612
  2. RANEXA [Suspect]
     Indication: ANGINA PECTORIS
     Dosage: 500 MG, QD, ORAL ; 500 MG, BID, ORAL ; 1000 MG, BID, ORAL
     Route: 048
     Dates: start: 20070613, end: 20070626
  3. RANEXA [Suspect]
     Indication: ANGINA PECTORIS
     Dosage: 500 MG, QD, ORAL ; 500 MG, BID, ORAL ; 1000 MG, BID, ORAL
     Route: 048
     Dates: start: 20070627, end: 20070828
  4. COUMADIN [Concomitant]

REACTIONS (7)
  - BALANCE DISORDER [None]
  - DIZZINESS [None]
  - FALL [None]
  - SKIN LACERATION [None]
  - TINNITUS [None]
  - TREMOR [None]
  - VISION BLURRED [None]
